FAERS Safety Report 9840740 (Version 1)
Quarter: 2013Q4

REPORT INFORMATION
  Report Type: Spontaneous
  Country: US (occurrence: None)
  Receive Date: 20131211
  Receipt Date: 20131211
  Transmission Date: 20140711
  Serious: Yes (Hospitalization)
  Sender: FDA-Public Use
  Company Number: ALL1-2012-02854

PATIENT
  Age: 56 Year
  Sex: Male

DRUGS (2)
  1. FOSRENOL [Suspect]
     Indication: RENAL FAILURE CHRONIC
     Dosage: ONE 1000MG AND ONE 500 MG TABLET
     Route: 048
     Dates: start: 201111, end: 201205
  2. FOSRENOL [Suspect]
     Indication: HYPERPHOSPHATAEMIA
     Dosage: ONE 1000MG AND ONE 500 MG TABLET
     Route: 048
     Dates: start: 201111, end: 201205

REACTIONS (1)
  - Vomiting [None]
